FAERS Safety Report 12465796 (Version 3)
Quarter: 2016Q3

REPORT INFORMATION
  Report Type: Spontaneous
  Country: SE (occurrence: SE)
  Receive Date: 20160614
  Receipt Date: 20160907
  Transmission Date: 20161109
  Serious: Yes (Other)
  Sender: FDA-Public Use
  Company Number: SE-009507513-1606SWE005802

PATIENT
  Age: 24 Year
  Sex: Female
  Weight: 80 kg

DRUGS (2)
  1. NEXPLANON [Suspect]
     Active Substance: ETONOGESTREL
     Indication: CONTRACEPTION
     Dosage: UNK
     Route: 059
     Dates: start: 2010, end: 2014
  2. NEXPLANON [Suspect]
     Active Substance: ETONOGESTREL
     Dosage: UNK
     Route: 059
     Dates: start: 2014

REACTIONS (8)
  - Product quality issue [Unknown]
  - Menstruation normal [Unknown]
  - Device dislocation [Recovered/Resolved]
  - General anaesthesia [Recovered/Resolved]
  - Device deployment issue [Recovered/Resolved]
  - Complication associated with device [Not Recovered/Not Resolved]
  - Complication associated with device [Recovered/Resolved]
  - Incorrect drug administration duration [Unknown]

NARRATIVE: CASE EVENT DATE: 2013
